FAERS Safety Report 5109456-2 (Version None)
Quarter: 2006Q3

REPORT INFORMATION
  Report Type: 
  Country: None (occurrence: None)
  Receive Date: 20060920
  Receipt Date: 20050725
  Transmission Date: 20061208
  Serious: Yes (Other)
  Sender: FDA-Public Use
  Company Number: US-BOEHRINGER INGELHEIM PHARMACEUTICALS, INC.-2005-BP-12636BP

PATIENT

DRUGS (4)
  1. VIRAMUNE [Suspect]
     Indication: HIV INFECTION
     Route: 015
     Dates: start: 20000403
  2. ABACAVIR [Suspect]
     Indication: HIV INFECTION
     Route: 015
     Dates: start: 20010920
  3. LAMIVUDINE [Suspect]
     Indication: HIV INFECTION
     Route: 015
     Dates: start: 20010920
  4. ZIDOVUDINE [Suspect]
     Indication: HIV INFECTION
     Route: 015
     Dates: start: 20010920

REACTIONS (2)
  - DRUG EXPOSURE DURING PREGNANCY [None]
  - PYELECTASIA [None]
